FAERS Safety Report 6265703-5 (Version None)
Quarter: 2009Q3

REPORT INFORMATION
  Report Type: 
  Country: None (occurrence: None)
  Receive Date: 20090713
  Receipt Date: 20090327
  Transmission Date: 20100115
  Serious: No
  Sender: FDA-Public Use
  Company Number: US-BAYER-200917201NA

PATIENT
  Sex: Female

DRUGS (1)
  1. CLIMARA [Suspect]
     Indication: HORMONE REPLACEMENT THERAPY
     Dosage: CONTINUOUS DELIVERY FOR ONCE WEEKLY APPLICATION
     Route: 062

REACTIONS (4)
  - APPLICATION SITE RASH [None]
  - APPLICATION SITE REACTION [None]
  - APPLICATION SITE VESICLES [None]
  - BREAST SWELLING [None]
